FAERS Safety Report 7720840-0 (Version None)
Quarter: 2011Q3

REPORT INFORMATION
  Report Type: 
  Country: None (occurrence: None)
  Receive Date: 20110831
  Receipt Date: 20110817
  Transmission Date: 20111222
  Serious: Yes (Hospitalization)
  Sender: FDA-Public Use
  Company Number: US-CELGENEUS-163-21880-11082311

PATIENT
  Sex: Male
  Weight: 94.886 kg

DRUGS (16)
  1. REVLIMID [Suspect]
     Indication: MULTIPLE MYELOMA
     Dosage: 10 MILLIGRAM
     Route: 048
     Dates: start: 20110702
  2. GLIMEPIRIDE [Concomitant]
     Route: 065
  3. COLACE [Concomitant]
     Indication: CONSTIPATION
     Route: 065
  4. ATIVAN [Concomitant]
     Indication: ANXIETY
     Route: 065
  5. COREG [Concomitant]
     Indication: HYPERTENSION
     Route: 065
  6. BACLOFEN [Concomitant]
     Route: 065
  7. RENAGEL [Concomitant]
     Route: 065
  8. LEXAPRO [Concomitant]
     Indication: DEPRESSION
     Route: 065
  9. LUNESTA [Concomitant]
     Route: 065
  10. FENTANYL [Concomitant]
     Indication: PAIN
     Route: 065
  11. GENTAMICIN [Concomitant]
     Route: 065
  12. DEXAMETHASONE [Concomitant]
     Route: 065
  13. DILAUDID [Concomitant]
     Indication: PAIN
     Route: 065
  14. LOVAZA [Concomitant]
     Route: 065
  15. GENTLELAX [Concomitant]
     Indication: CONSTIPATION
     Route: 065
  16. PROTONIX [Concomitant]
     Route: 065

REACTIONS (1)
  - BLOOD CALCIUM INCREASED [None]
